FAERS Safety Report 13509858 (Version 1)
Quarter: 2017Q2

REPORT INFORMATION
  Report Type: Spontaneous
  Country: US (occurrence: US)
  Receive Date: 20170503
  Receipt Date: 20170503
  Transmission Date: 20170830
  Serious: No
  Sender: FDA-Public Use
  Company Number: US-SA-2017SA048187

PATIENT
  Sex: Female

DRUGS (7)
  1. PRALUENT [Suspect]
     Active Substance: ALIROCUMAB
     Route: 065
  2. ALIROCUMAB PREFILLED PEN [Concomitant]
     Active Substance: ALIROCUMAB
  3. REPATHA [Concomitant]
     Active Substance: EVOLOCUMAB
  4. PRALUENT [Suspect]
     Active Substance: ALIROCUMAB
     Route: 065
  5. REPATHA [Concomitant]
     Active Substance: EVOLOCUMAB
  6. ALIROCUMAB PREFILLED PEN [Concomitant]
     Active Substance: ALIROCUMAB
  7. CRESTOR [Concomitant]
     Active Substance: ROSUVASTATIN CALCIUM

REACTIONS (2)
  - Low density lipoprotein increased [Not Recovered/Not Resolved]
  - Product use in unapproved indication [Unknown]
